FAERS Safety Report 9353278 (Version 1)
Quarter: 2013Q2

REPORT INFORMATION
  Report Type: Spontaneous
  Country: US (occurrence: US)
  Receive Date: 20130618
  Receipt Date: 20130618
  Transmission Date: 20140414
  Serious: No
  Sender: FDA-Public Use
  Company Number: US-PFIZER INC-2013181235

PATIENT
  Sex: Male
  Weight: 81.63 kg

DRUGS (4)
  1. CHANTIX [Suspect]
     Indication: SMOKING CESSATION THERAPY
     Dosage: 0.5 MG DAILY
  2. CRESTOR [Concomitant]
     Indication: BLOOD CHOLESTEROL INCREASED
     Dosage: UNK
  3. LATANOPROST [Concomitant]
     Indication: GLAUCOMA
     Dosage: UNK, 2X/DAY
     Route: 047
  4. AZOPT [Concomitant]
     Indication: GLAUCOMA
     Dosage: UNK, 2X/DAY
     Route: 047

REACTIONS (1)
  - Drug ineffective [Unknown]
